FAERS Safety Report 9476081 (Version 1)
Quarter: 2013Q3

REPORT INFORMATION
  Report Type: Spontaneous
  Country: FR (occurrence: None)
  Receive Date: 20130821
  Receipt Date: 20130821
  Transmission Date: 20140515
  Serious: Yes (Other)
  Sender: FDA-Public Use
  Company Number: SYM-2013-08775

PATIENT
  Age: 78 Year
  Sex: Female

DRUGS (5)
  1. FLAGYL [Suspect]
     Indication: INFECTION
     Dates: end: 20130707
  2. TRIFLUCAN [Suspect]
     Indication: INFECTION
     Dosage: 2 IN 1 D
     Dates: end: 20130705
  3. LASILIX [Concomitant]
  4. ALDACTONE (SPIRONOLACTONE) (SPIRONOLACTONE) [Concomitant]
  5. INEXIUM (ESOMEPRAZOLE MAGNESIUM) (ESOMEPRAZOLE MAGNESIUM) [Concomitant]

REACTIONS (3)
  - Hepatocellular injury [None]
  - Iatrogenic injury [None]
  - Melaena [None]
